FAERS Safety Report 5135169-7 (Version None)
Quarter: 2006Q4

REPORT INFORMATION
  Report Type: 
  Country: None (occurrence: None)
  Receive Date: 20061026
  Receipt Date: 20061013
  Transmission Date: 20070319
  Serious: Yes (Hospitalization)
  Sender: FDA-Public Use
  Company Number: PHBS2006CH16033

PATIENT
  Age: 41 Year
  Sex: Female

DRUGS (3)
  1. GLEEVEC [Suspect]
     Indication: CHRONIC MYELOID LEUKAEMIA
     Dosage: 400 MG/D
     Route: 065
     Dates: start: 20060601
  2. ACETAMINOPHEN [Concomitant]
     Indication: HEADACHE
     Dosage: 4 G/D
  3. NEURONTIN [Concomitant]
     Indication: EPILEPSY
     Dosage: 300 MG/D

REACTIONS (1)
  - PORPHYRIA [None]
